FAERS Safety Report 12527243 (Version 1)
Quarter: 2016Q3

REPORT INFORMATION
  Report Type: Spontaneous
  Country: JP (occurrence: JP)
  Receive Date: 20160705
  Receipt Date: 20160705
  Transmission Date: 20161109
  Serious: Yes (Death, Other)
  Sender: FDA-Public Use
  Company Number: JP-BAYER-2016-123028

PATIENT
  Age: 20 Year
  Sex: Female

DRUGS (2)
  1. WARFARIN POTASSIUM [Concomitant]
     Active Substance: WARFARIN POTASSIUM
     Dosage: DAILY DOSE 3.5 MG
     Route: 048
  2. ACETYLSALICYLIC ACID({=100 MG) [Suspect]
     Active Substance: ASPIRIN
     Dosage: DAILY DOSE 200 MG
     Route: 048

REACTIONS (5)
  - Cerebral artery occlusion [None]
  - Cerebral haemorrhage [None]
  - Cerebral infarction [None]
  - Infection [None]
  - Cardiovascular disorder [Fatal]
